FAERS Safety Report 4357628-7 (Version None)
Quarter: 2004Q2

REPORT INFORMATION
  Report Type: 
  Country: None (occurrence: None)
  Receive Date: 20040510
  Receipt Date: 20040503
  Transmission Date: 20050107
  Serious: Yes (Death)
  Sender: FDA-Public Use
  Company Number: USA-2004-0014952

PATIENT
  Age: 55 Year
  Sex: Male
  Weight: 88.4 kg

DRUGS (2)
  1. MORPHINE SULFATE [Suspect]
  2. PHENYTOIN [Suspect]

REACTIONS (8)
  - AGE INDETERMINATE MYOCARDIAL INFARCTION [None]
  - CORONARY ARTERY DISEASE [None]
  - DRUG LEVEL BELOW THERAPEUTIC [None]
  - HAEMORRHAGE INTRACRANIAL [None]
  - SKULL FRACTURE [None]
  - SUBARACHNOID HAEMORRHAGE [None]
  - SUBDURAL HAEMATOMA [None]
  - TOXICOLOGIC TEST ABNORMAL [None]
